FAERS Safety Report 15669046 (Version 1)
Quarter: 2018Q4

REPORT INFORMATION
  Report Type: Spontaneous
  Country: US (occurrence: US)
  Receive Date: 20181129
  Receipt Date: 20181129
  Transmission Date: 20190205
  Serious: Yes (Other)
  Sender: FDA-Public Use
  Company Number: US-DRREDDYS-USA/USA/18/0105739

PATIENT
  Age: 31 Year
  Sex: Female
  Weight: 98 kg

DRUGS (11)
  1. ACYCLOVIR. [Suspect]
     Active Substance: ACYCLOVIR
     Indication: PRODUCT USED FOR UNKNOWN INDICATION
  2. SIROLIMUS. [Suspect]
     Active Substance: SIROLIMUS
     Indication: GRAFT VERSUS HOST DISEASE
     Route: 048
  3. PENTAMIDINE [Suspect]
     Active Substance: PENTAMIDINE
     Indication: PRODUCT USED FOR UNKNOWN INDICATION
  4. SIROLIMUS. [Interacting]
     Active Substance: SIROLIMUS
     Route: 048
  5. SIROLIMUS. [Interacting]
     Active Substance: SIROLIMUS
     Route: 048
  6. SIROLIMUS. [Interacting]
     Active Substance: SIROLIMUS
     Route: 048
  7. MIRABEGRON [Interacting]
     Active Substance: MIRABEGRON
     Indication: BK VIRUS INFECTION
     Route: 048
  8. TOLTERODINE [Suspect]
     Active Substance: TOLTERODINE
     Indication: PRODUCT USED FOR UNKNOWN INDICATION
  9. FLUDARABINE [Suspect]
     Active Substance: FLUDARABINE PHOSPHATE
     Indication: GRAFT VERSUS HOST DISEASE
  10. CYCLOPHOSPHAMIDE. [Suspect]
     Active Substance: CYCLOPHOSPHAMIDE
     Indication: GRAFT VERSUS HOST DISEASE
  11. MYCOPHENOLATE MOFETIL. [Suspect]
     Active Substance: MYCOPHENOLATE MOFETIL
     Indication: GRAFT VERSUS HOST DISEASE

REACTIONS (6)
  - Febrile neutropenia [Unknown]
  - Drug level increased [Recovered/Resolved]
  - Urinary tract infection enterococcal [Unknown]
  - BK virus infection [Unknown]
  - Staphylococcal infection [Unknown]
  - Drug interaction [Recovered/Resolved]
